FAERS Safety Report 23412550 (Version 1)
Quarter: 2024Q1

REPORT INFORMATION
  Report Type: Spontaneous
  Country: US (occurrence: US)
  Receive Date: 20240117
  Receipt Date: 20240117
  Transmission Date: 20240409
  Serious: No
  Sender: FDA-Public Use
  Company Number: US-NOVOPROD-1102017

PATIENT

DRUGS (1)
  1. OZEMPIC [Suspect]
     Active Substance: SEMAGLUTIDE
     Indication: Product used for unknown indication
     Dosage: UNK
     Route: 058
     Dates: start: 202305

REACTIONS (6)
  - Asthenia [Unknown]
  - Vomiting [Not Recovered/Not Resolved]
  - Feeding disorder [Unknown]
  - Tooth injury [Unknown]
  - Bruxism [Unknown]
  - Toothache [Unknown]
